FAERS Safety Report 8555027-5 (Version None)
Quarter: 2012Q3

REPORT INFORMATION
  Report Type: 
  Country: None (occurrence: None)
  Receive Date: 20120731
  Receipt Date: 20120723
  Transmission Date: 20120928
  Serious: Yes (Other)
  Sender: FDA-Public Use
  Company Number: US-ABBOTT-12P-163-0959263-00

PATIENT
  Age: 54 Year
  Sex: Female

DRUGS (4)
  1. HUMIRA [Suspect]
     Dates: start: 20120503, end: 20120517
  2. HUMIRA [Suspect]
     Dates: start: 20120708
  3. HUMIRA [Suspect]
     Indication: CROHN'S DISEASE
     Dates: start: 20100601, end: 20120314
  4. SEVERAL CHINESE HERBS [Concomitant]
     Indication: PRODUCT USED FOR UNKNOWN INDICATION

REACTIONS (13)
  - INGUINAL HERNIA [None]
  - ABDOMINAL PAIN [None]
  - APPENDICECTOMY [None]
  - POSTOPERATIVE ADHESION [None]
  - INJECTION SITE SWELLING [None]
  - DEVICE MALFUNCTION [None]
  - INJECTION SITE ERYTHEMA [None]
  - INCORRECT DOSE ADMINISTERED [None]
  - INTESTINAL RESECTION [None]
  - CHOLECYSTECTOMY [None]
  - INJECTION SITE HAEMATOMA [None]
  - DYSPEPSIA [None]
  - INCISION SITE ABSCESS [None]
